FAERS Safety Report 6151364-2 (Version None)
Quarter: 2009Q2

REPORT INFORMATION
  Report Type: 
  Country: None (occurrence: None)
  Receive Date: 20090410
  Receipt Date: 20090331
  Transmission Date: 20091009
  Serious: No
  Sender: FDA-Public Use
  Company Number: US-JNJFOC-20090400331

PATIENT
  Sex: Female
  Weight: 58.06 kg

DRUGS (6)
  1. FENTANYL TRANSDERMAL SYSTEM [Suspect]
     Indication: INTERVERTEBRAL DISC PROTRUSION
     Route: 062
  2. FENTANYL TRANSDERMAL SYSTEM [Suspect]
     Indication: DRUG USE FOR UNKNOWN INDICATION
     Route: 065
  3. LYRICA [Concomitant]
     Indication: NEUROPATHY PERIPHERAL
     Route: 048
  4. HYDROCODONE BITARTRATE [Concomitant]
     Indication: PAIN
     Dosage: 7.5/500 MG
     Route: 048
  5. BALZIVA [Concomitant]
     Indication: MENSTRUATION IRREGULAR
     Route: 048
  6. MECLAMINE [Concomitant]
     Indication: INTERVERTEBRAL DISC DISORDER
     Route: 048

REACTIONS (8)
  - APPLICATION SITE ANAESTHESIA [None]
  - APPLICATION SITE ERYTHEMA [None]
  - APPLICATION SITE PRURITUS [None]
  - DEVICE LEAKAGE [None]
  - DIZZINESS [None]
  - HYPOAESTHESIA FACIAL [None]
  - MEDICATION ERROR [None]
  - TREATMENT NONCOMPLIANCE [None]
